FAERS Safety Report 4656568-3 (Version None)
Quarter: 2005Q2

REPORT INFORMATION
  Report Type: 
  Country: None (occurrence: None)
  Receive Date: 20050331
  Receipt Date: 20041129
  Transmission Date: 20051028
  Serious: No
  Sender: FDA-Public Use
  Company Number: US100908

PATIENT
  Sex: Male

DRUGS (2)
  1. NEULASTA [Suspect]
     Indication: CHEMOTHERAPY
  2. NEUPOGEN [Suspect]
     Indication: CHEMOTHERAPY

REACTIONS (2)
  - PANCYTOPENIA [None]
  - PLATELET COUNT DECREASED [None]
